FAERS Safety Report 6739011-X (Version None)
Quarter: 2010Q2

REPORT INFORMATION
  Report Type: 
  Country: None (occurrence: None)
  Receive Date: 20100524
  Receipt Date: 20100524
  Transmission Date: 20101027
  Serious: Yes (Other)
  Sender: FDA-Public Use
  Company Number: None

PATIENT
  Age: 19 Month
  Sex: Female
  Weight: 9.5255 kg

DRUGS (2)
  1. DESITIN RAPID RELIEF CREAMY 13% ZINC OXIDE JOHNSON AND JOHNSON [Suspect]
     Indication: DERMATITIS DIAPER
     Dosage: 1 APPLICATION EVERY DIAPER CHANG TOP
     Route: 061
     Dates: start: 20090301, end: 20100309
  2. DESITIN RAPID RELIEF CREAMY 13% ZINC OXIDE JOHNSON AND JOHNSON [Suspect]
     Indication: PROPHYLAXIS
     Dosage: 1 APPLICATION EVERY DIAPER CHANG TOP
     Route: 061
     Dates: start: 20090301, end: 20100309

REACTIONS (3)
  - APPLICATION SITE PAIN [None]
  - APPLICATION SITE RASH [None]
  - SCREAMING [None]
